FAERS Safety Report 17769256 (Version 3)
Quarter: 2020Q3

REPORT INFORMATION
  Report Type: Spontaneous
  Country: US (occurrence: US)
  Receive Date: 20200512
  Receipt Date: 20200813
  Transmission Date: 20201102
  Serious: Yes (Death, Hospitalization, Other)
  Sender: FDA-Public Use
  Company Number: US-009507513-2005USA002826

PATIENT
  Sex: Male
  Weight: 83.9 kg

DRUGS (2)
  1. JANUVIA [Suspect]
     Active Substance: SITAGLIPTIN PHOSPHATE
     Dosage: 100 MILLIGRAM, QD
     Route: 048
     Dates: start: 20070507, end: 201106
  2. JANUMET [Suspect]
     Active Substance: METFORMIN HYDROCHLORIDE\SITAGLIPTIN PHOSPHATE
     Dosage: 50/1000 MG. TWICE DAILY
     Route: 048
     Dates: start: 20110604, end: 201206

REACTIONS (20)
  - Abdominal lymphadenopathy [Unknown]
  - Death [Fatal]
  - Decreased appetite [Unknown]
  - Neuropathy peripheral [Unknown]
  - Abdominal distension [Unknown]
  - Nausea [Unknown]
  - Pancreatic carcinoma stage IV [Unknown]
  - Facial wasting [Unknown]
  - Constipation [Unknown]
  - Abdominal rigidity [Unknown]
  - Abdominal pain [Unknown]
  - Muscle spasms [Unknown]
  - Lymphadenopathy [Unknown]
  - Fatigue [Unknown]
  - Illness [Unknown]
  - Myalgia [Unknown]
  - Malignant neoplasm progression [Unknown]
  - Spleen disorder [Unknown]
  - Pain [Unknown]
  - Vomiting [Unknown]

NARRATIVE: CASE EVENT DATE: 20130723
